FAERS Safety Report 26043102 (Version 1)
Quarter: 2025Q4

REPORT INFORMATION
  Report Type: Spontaneous
  Country: US (occurrence: US)
  Receive Date: 20251113
  Receipt Date: 20251113
  Transmission Date: 20260118
  Serious: Yes (Other)
  Sender: BAYER HEALTHCARE LLC
  Company Number: US-BAYER-2025A150272

PATIENT
  Age: 85 Year
  Sex: Female

DRUGS (2)
  1. ACETAMINOPHEN\GUAIFENESIN [Suspect]
     Active Substance: ACETAMINOPHEN\GUAIFENESIN
     Indication: Hypersensitivity
     Dosage: 2 DF, QD
     Route: 048
     Dates: start: 20251109
  2. ACETAMINOPHEN\GUAIFENESIN [Suspect]
     Active Substance: ACETAMINOPHEN\GUAIFENESIN
     Indication: Nasopharyngitis

REACTIONS (4)
  - Choking [Recovered/Resolved with Sequelae]
  - Oropharyngeal pain [Recovering/Resolving]
  - Incorrect dose administered [Recovered/Resolved]
  - Product size issue [None]

NARRATIVE: CASE EVENT DATE: 20251109
